FAERS Safety Report 4712563-7 (Version None)
Quarter: 2005Q2

REPORT INFORMATION
  Report Type: 
  Country: None (occurrence: None)
  Receive Date: 20050629
  Receipt Date: 20050502
  Transmission Date: 20051028
  Serious: No
  Sender: FDA-Public Use
  Company Number: 05P-163-0297370-00

PATIENT
  Age: 61 Year
  Sex: Female
  Weight: 72.5755 kg

DRUGS (13)
  1. HUMIRA [Suspect]
     Indication: RHEUMATOID ARTHRITIS
     Dosage: 40 MG, 1 IN 2 WK, SUBCUTANEOUS
     Route: 058
     Dates: start: 20050201
  2. PREDNISONE [Concomitant]
  3. HYDROXYCHLOROQUINE PHOSPHATE [Concomitant]
  4. METHOTREXATE [Concomitant]
  5. ESTROGENS CONJUGATED [Concomitant]
  6. ATENOLOL [Concomitant]
  7. LEVOTHYROXINE SODIUM [Concomitant]
  8. FUROSEMIDE [Concomitant]
  9. GABAPENTIN [Concomitant]
  10. FOLIC ACID [Concomitant]
  11. DONNATAL [Concomitant]
  12. CALCIUM +D [Concomitant]
  13. CYCLOBENZAPINE HYDROCHLORIDE [Concomitant]

REACTIONS (4)
  - INJECTION SITE DISCOLOURATION [None]
  - INJECTION SITE ERYTHEMA [None]
  - INJECTION SITE PRURITUS [None]
  - INJECTION SITE WARMTH [None]
